FAERS Safety Report 5355021-1 (Version None)
Quarter: 2007Q2

REPORT INFORMATION
  Report Type: 
  Country: None (occurrence: None)
  Receive Date: 20070521
  Receipt Date: 20070405
  Transmission Date: 20071010
  Serious: No
  Sender: FDA-Public Use
  Company Number: WAES 0704USA00993

PATIENT
  Age: 73 Year
  Sex: Male

DRUGS (13)
  1. JANUVIA [Suspect]
     Indication: DIABETES MELLITUS
     Dosage: 100 MG/DAILY/PO
     Route: 048
     Dates: start: 20070222, end: 20070404
  2. ARICEPT [Concomitant]
  3. AVANDIA [Concomitant]
  4. CARAFATE [Concomitant]
  5. LIPITOR [Concomitant]
  6. PLAVIX [Concomitant]
  7. PLENDIL [Concomitant]
  8. PROTONIX [Concomitant]
  9. TRICOR [Concomitant]
  10. ZETIA [Concomitant]
  11. LISINOPRIL [Concomitant]
  12. METOPROPLOL [Concomitant]
  13. TORSEMIDE [Concomitant]

REACTIONS (3)
  - ANAEMIA [None]
  - BLOOD CREATININE INCREASED [None]
  - RENAL IMPAIRMENT [None]
